FAERS Safety Report 24424684 (Version 2)
Quarter: 2024Q4

REPORT INFORMATION
  Report Type: Spontaneous
  Country: US (occurrence: US)
  Receive Date: 20241010
  Receipt Date: 20241202
  Transmission Date: 20250114
  Serious: No
  Sender: PFIZER
  Company Number: US-PFIZER INC-202400270835

PATIENT
  Age: 14 Year
  Sex: Male

DRUGS (1)
  1. NGENLA [Suspect]
     Active Substance: SOMATROGON-GHLA
     Dosage: 16 MG, WEEKLY

REACTIONS (2)
  - Injection site hypertrophy [Unknown]
  - Injection site mass [Unknown]
